FAERS Safety Report 8257605 (Version 7)
Quarter: 2014Q1

REPORT INFORMATION
  Report Type: Report from Study
  Country: CN (occurrence: CN)
  Receive Date: 20111121
  Receipt Date: 20140314
  Transmission Date: 20141002
  Serious: Yes (Death)
  Sender: FDA-Public Use
  Company Number: PHHO2011CN019091

PATIENT
  Age: 58 Year
  Sex: Male
  Weight: 65.8 kg

DRUGS (11)
  1. BLINDED ENALAPRIL [Suspect]
     Indication: CARDIAC FAILURE CHRONIC
     Dosage: NO TREATMENT
  2. BLINDED LCZ696 [Suspect]
     Indication: CARDIAC FAILURE CHRONIC
     Dosage: NO TREATMENT
  3. BLINDED LCZ696 [Suspect]
     Indication: CARDIAC FAILURE CHRONIC
     Dosage: NO TREATMENT
  4. BLINDED NO TREATMENT RECEIVED [Suspect]
     Indication: CARDIAC FAILURE CHRONIC
     Dosage: NO TREATMENT
  5. COMPARATOR ENALAPRIL [Suspect]
     Indication: CARDIAC FAILURE CHRONIC
     Dosage: SINGLE BLIND
     Route: 048
     Dates: start: 20111218
  6. METOPROLOL [Concomitant]
  7. ISOSORBIDE MONONITRATE [Concomitant]
  8. RAMIPRIL [Concomitant]
  9. ASPIRIN [Concomitant]
     Indication: PLATELET AGGREGATION
     Dosage: 100 MG, QD
     Route: 048
     Dates: start: 20110823
  10. ATORVASTATIN [Concomitant]
     Indication: HYPERLIPIDAEMIA
     Dosage: 20 MG, QD
     Route: 048
     Dates: start: 20110823
  11. INSULIN [Concomitant]
     Indication: DIABETES MELLITUS
     Dosage: 25 IU, UNK
     Dates: start: 20110429

REACTIONS (3)
  - Sudden cardiac death [Fatal]
  - Respiratory failure [Fatal]
  - Loss of consciousness [Fatal]
